FAERS Safety Report 6046281-2 (Version None)
Quarter: 2009Q1

REPORT INFORMATION
  Report Type: 
  Country: None (occurrence: None)
  Receive Date: 20090121
  Receipt Date: 20090121
  Transmission Date: 20090719
  Serious: No
  Sender: FDA-Public Use
  Company Number: None

PATIENT
  Age: 52 Year
  Sex: Male
  Weight: 92.9874 kg

DRUGS (1)
  1. FLUOROURACIL [Suspect]
     Indication: PRECANCEROUS CELLS PRESENT
     Dosage: 5% TWICE A DAY TOP
     Route: 061
     Dates: start: 20040924, end: 20041001

REACTIONS (6)
  - ACNE [None]
  - DRY SKIN [None]
  - ERYTHEMA [None]
  - PHOTOSENSITIVITY REACTION [None]
  - SKIN BACTERIAL INFECTION [None]
  - SKIN DISORDER [None]
